FAERS Safety Report 15886497 (Version 1)
Quarter: 2019Q1

REPORT INFORMATION
  Report Type: Spontaneous
  Country: FR (occurrence: FR)
  Receive Date: 20190129
  Receipt Date: 20190129
  Transmission Date: 20190417
  Serious: Yes (Other)
  Sender: FDA-Public Use
  Company Number: FR-PFIZER INC-2019034794

PATIENT
  Age: 68 Year
  Sex: Male
  Weight: 58 kg

DRUGS (2)
  1. IRINOTECAN HCL [Suspect]
     Active Substance: IRINOTECAN HYDROCHLORIDE
     Indication: OESOPHAGEAL ADENOCARCINOMA
     Dosage: 308 MG, UNK
     Route: 042
     Dates: start: 20181204, end: 20181204
  2. LEVOLEUCOVORIN CALCIUM. [Suspect]
     Active Substance: LEVOLEUCOVORIN CALCIUM
     Indication: OESOPHAGEAL ADENOCARCINOMA
     Dosage: 342 MG, UNK
     Route: 042
     Dates: start: 20181204, end: 20181204

REACTIONS (6)
  - Tremor [Recovered/Resolved]
  - Incoherent [Recovered/Resolved]
  - Back pain [Recovered/Resolved]
  - Tachycardia [Recovered/Resolved]
  - Speech disorder [Recovered/Resolved]
  - Motor dysfunction [Recovered/Resolved]

NARRATIVE: CASE EVENT DATE: 20181204
